FAERS Safety Report 10393450 (Version 1)
Quarter: 2014Q3

REPORT INFORMATION
  Report Type: Report from Study
  Country: BR (occurrence: BR)
  Receive Date: 20140819
  Receipt Date: 20140819
  Transmission Date: 20150326
  Serious: Yes (Other)
  Sender: FDA-Public Use
  Company Number: BR-GLAXOSMITHKLINE-A1085363A

PATIENT
  Age: 78 Year
  Sex: Female
  Weight: 74 kg

DRUGS (4)
  1. SERETIDE [Suspect]
     Active Substance: FLUTICASONE FUROATE\SALMETEROL XINAFOATE
     Indication: ASTHMA
     Dosage: 1PUFF TWICE PER DAY
     Route: 055
     Dates: start: 2012
  2. PURAN [Concomitant]
     Active Substance: LEVOTHYROXINE SODIUM
     Indication: THYROID DISORDER
     Dosage: 1TAB PER DAY
     Route: 048
     Dates: start: 2013
  3. RIVOTRIL [Concomitant]
     Active Substance: CLONAZEPAM
     Dosage: 1TAB AT NIGHT
     Route: 048
     Dates: start: 2009
  4. SERETIDE [Suspect]
     Active Substance: FLUTICASONE FUROATE\SALMETEROL XINAFOATE
     Indication: ASTHMA
     Dosage: 1PUFF TWICE PER DAY
     Route: 055
     Dates: start: 2006, end: 2012

REACTIONS (4)
  - Dyspnoea [Recovered/Resolved]
  - Cataract operation [Unknown]
  - Spinal operation [Unknown]
  - Drug ineffective [Recovered/Resolved]

NARRATIVE: CASE EVENT DATE: 2013
